FAERS Safety Report 17507878 (Version 3)
Quarter: 2020Q1

REPORT INFORMATION
  Report Type: Spontaneous
  Country: US (occurrence: US)
  Receive Date: 20200305
  Receipt Date: 20200317
  Transmission Date: 20200409
  Serious: Yes (Life-Threatening, Hospitalization)
  Sender: FDA-Public Use
  Company Number: US-BIOMARINAP-US-2020-128740

PATIENT
  Age: 25 Year
  Sex: Female

DRUGS (2)
  1. CLARITIN [CLARITHROMYCIN] [Concomitant]
     Active Substance: CLARITHROMYCIN
     Indication: PREMEDICATION
     Dosage: 10 MILLIGRAM, BID
     Route: 048
  2. PALYNZIQ [Suspect]
     Active Substance: PEGVALIASE-PQPZ
     Indication: PHENYLKETONURIA
     Dosage: 20 MILLIGRAM, QD
     Route: 058
     Dates: start: 201906

REACTIONS (12)
  - Dyspnoea [Recovering/Resolving]
  - Vomiting [Recovering/Resolving]
  - Hypotension [Recovering/Resolving]
  - Nausea [Recovering/Resolving]
  - Urinary incontinence [Recovering/Resolving]
  - Anaphylactic reaction [Recovering/Resolving]
  - Tachycardia [Recovering/Resolving]
  - Chest pain [Recovering/Resolving]
  - Wheezing [Recovering/Resolving]
  - Pharyngeal swelling [Recovering/Resolving]
  - Urticaria [Recovering/Resolving]
  - Palatal oedema [Recovering/Resolving]

NARRATIVE: CASE EVENT DATE: 20200224
